FAERS Safety Report 12732356 (Version 1)
Quarter: 2016Q3

REPORT INFORMATION
  Report Type: Spontaneous
  Country: US (occurrence: US)
  Receive Date: 20160912
  Receipt Date: 20160912
  Transmission Date: 20161109
  Serious: Yes (Hospitalization)
  Sender: FDA-Public Use
  Company Number: None

PATIENT
  Age: 55 Year
  Sex: Male
  Weight: 83.46 kg

DRUGS (24)
  1. DOCUSATE SODIUM. [Concomitant]
     Active Substance: DOCUSATE SODIUM
  2. DILAUDID [Concomitant]
     Active Substance: HYDROMORPHONE HYDROCHLORIDE
  3. ALLOPURINOL. [Concomitant]
     Active Substance: ALLOPURINOL
  4. LANATHANUM [Concomitant]
  5. ROPINIROLE. [Concomitant]
     Active Substance: ROPINIROLE
  6. WARFARIN [Concomitant]
     Active Substance: WARFARIN
  7. DARBEPOETIN ALFA [Concomitant]
     Active Substance: DARBEPOETIN ALFA
  8. NORTRIPTYLINE [Concomitant]
     Active Substance: NORTRIPTYLINE
  9. SILDENAFIL. [Concomitant]
     Active Substance: SILDENAFIL
  10. ATORVASTATIN [Concomitant]
     Active Substance: ATORVASTATIN
  11. VITAMIN B COMPLEX [Concomitant]
     Active Substance: CYANOCOBALAMIN\DEXPANTHENOL\NIACINAMIDE\PYRIDOXINE HYDROCHLORIDE\RIBOFLAVIN 5^-PHOSPHATE SODIUM\THIAMINE HYDROCHLORIDE\VITAMIN B COMPLEX
  12. CINACALCET [Concomitant]
     Active Substance: CINACALCET
  13. FERROUS SULFATE. [Concomitant]
     Active Substance: FERROUS SULFATE
  14. TORADOL [Concomitant]
     Active Substance: KETOROLAC TROMETHAMINE
  15. OXYCODONE [Concomitant]
     Active Substance: OXYCODONE
  16. OXYCODONE [Concomitant]
     Active Substance: OXYCODONE
  17. OMEPRAZOLE. [Concomitant]
     Active Substance: OMEPRAZOLE
  18. ZEPATIER [Suspect]
     Active Substance: ELBASVIR\GRAZOPREVIR
     Indication: HEPATITIS C
     Dosage: 50MG/100MG QD ORAL
     Route: 048
     Dates: start: 20160414, end: 20160707
  19. VITAMIN C [Concomitant]
     Active Substance: ASCORBIC ACID
  20. COLCHICINE. [Concomitant]
     Active Substance: COLCHICINE
  21. MECLIZINE [Concomitant]
     Active Substance: MECLIZINE HYDROCHLORIDE
  22. SODIUM POLYSTYRENE SULFONATE. [Concomitant]
     Active Substance: SODIUM POLYSTYRENE SULFONATE
  23. PREDNISONE. [Concomitant]
     Active Substance: PREDNISONE
  24. MORPHINE [Concomitant]
     Active Substance: MORPHINE

REACTIONS (3)
  - Pain [None]
  - Arthralgia [None]
  - Injury [None]

NARRATIVE: CASE EVENT DATE: 20160427
